FAERS Safety Report 6247897-0 (Version None)
Quarter: 2009Q2

REPORT INFORMATION
  Report Type: 
  Country: None (occurrence: None)
  Receive Date: 20090626
  Receipt Date: 20090623
  Transmission Date: 20091009
  Serious: Yes (Death, Hospitalization)
  Sender: FDA-Public Use
  Company Number: US-GENENTECH-285567

PATIENT
  Age: 63 Year
  Sex: Female
  Weight: 58.9 kg

DRUGS (2)
  1. BEVACIZUMAB [Suspect]
     Indication: BRONCHIOLOALVEOLAR CARCINOMA
     Dosage: 875 MG, Q21D
     Route: 042
     Dates: start: 20090508
  2. ERLOTINIB [Suspect]
     Indication: BRONCHIOLOALVEOLAR CARCINOMA
     Dosage: 150 MG, QD
     Route: 048
     Dates: start: 20090508

REACTIONS (2)
  - SMALL INTESTINAL OBSTRUCTION [None]
  - SUDDEN DEATH [None]
